FAERS Safety Report 4561563-9 (Version None)
Quarter: 2005Q1

REPORT INFORMATION
  Report Type: 
  Country: None (occurrence: None)
  Receive Date: 20050121
  Receipt Date: 20041230
  Transmission Date: 20050727
  Serious: Yes (Other)
  Sender: FDA-Public Use
  Company Number: USA050187217

PATIENT
  Age: 12 Year
  Sex: Male
  Weight: 39 kg

DRUGS (2)
  1. PROZAC [Suspect]
     Indication: DEPRESSION
     Dosage: 20 MG DAY
     Dates: start: 20031201
  2. CONCERTA [Concomitant]

REACTIONS (4)
  - BLINDNESS UNILATERAL [None]
  - EYE INFLAMMATION [None]
  - OCULAR HYPERAEMIA [None]
  - UVEITIS [None]
